FAERS Safety Report 5278394-7 (Version None)
Quarter: 2007Q1

REPORT INFORMATION
  Report Type: 
  Country: None (occurrence: None)
  Receive Date: 20070322
  Receipt Date: 20070306
  Transmission Date: 20070707
  Serious: Yes (Life-Threatening, Other)
  Sender: FDA-Public Use
  Company Number: DSA_29584_2007

PATIENT
  Age: 16 Month

DRUGS (1)
  1. LORAZEPAM [Suspect]
     Dosage: DF ONCE PO
     Route: 048

REACTIONS (2)
  - ACCIDENTAL DRUG INTAKE BY CHILD [None]
  - DIZZINESS [None]
